FAERS Safety Report 9831636 (Version 1)
Quarter: 2014Q1

REPORT INFORMATION
  Report Type: Spontaneous
  Country: US (occurrence: US)
  Receive Date: 20140121
  Receipt Date: 20140121
  Transmission Date: 20141002
  Serious: Yes (Death)
  Sender: FDA-Public Use
  Company Number: US-PFIZER INC-2014016596

PATIENT
  Age: 72 Year
  Sex: Male

DRUGS (1)
  1. SUTENT [Suspect]
     Indication: CARCINOID TUMOUR
     Dosage: 25 MG, DAILY (ONE 25 MG CAPSULE DAILY)

REACTIONS (2)
  - Disease progression [Fatal]
  - Carcinoid tumour [Fatal]
